FAERS Safety Report 13886788 (Version 1)
Quarter: 2017Q3

REPORT INFORMATION
  Report Type: Spontaneous
  Country: US (occurrence: US)
  Receive Date: 20170821
  Receipt Date: 20170821
  Transmission Date: 20171127
  Serious: No
  Sender: FDA-Public Use
  Company Number: US-ASTRAZENECA-2017SE83120

PATIENT
  Age: 1004 Month
  Sex: Female

DRUGS (5)
  1. PULMICORT FLEXHALER [Suspect]
     Active Substance: BUDESONIDE
     Indication: ASTHMA
     Dosage: 90 MICROGRAMS, ONE PUFF TWO TIMES A DAY
     Route: 055
     Dates: start: 201611, end: 2017
  2. PULMICORT FLEXHALER [Suspect]
     Active Substance: BUDESONIDE
     Indication: ASTHMA
     Dosage: 90 MICROGRAMS, ONE PUFF TWO TIMES A DAY
     Route: 055
     Dates: start: 201708
  3. PULMICORT FLEXHALER [Suspect]
     Active Substance: BUDESONIDE
     Indication: WHEEZING
     Dosage: 90 MICROGRAMS, ONE PUFF TWO TIMES A DAY
     Route: 055
     Dates: start: 201708
  4. PULMICORT FLEXHALER [Suspect]
     Active Substance: BUDESONIDE
     Indication: WHEEZING
     Dosage: 90 MICROGRAMS, ONE PUFF TWO TIMES A DAY
     Route: 055
     Dates: start: 201611, end: 2017
  5. PROAIR HFA [Concomitant]
     Active Substance: ALBUTEROL SULFATE

REACTIONS (7)
  - Weight decreased [Not Recovered/Not Resolved]
  - Wheezing [Not Recovered/Not Resolved]
  - Malaise [Not Recovered/Not Resolved]
  - Intentional product misuse [Not Recovered/Not Resolved]
  - Off label use [Not Recovered/Not Resolved]
  - Productive cough [Unknown]
  - Therapy cessation [Unknown]

NARRATIVE: CASE EVENT DATE: 201610
